FAERS Safety Report 24414981 (Version 3)
Quarter: 2024Q4

REPORT INFORMATION
  Report Type: Report from Study
  Country: JP (occurrence: JP)
  Receive Date: 20241009
  Receipt Date: 20241226
  Transmission Date: 20250115
  Serious: Yes (Other)
  Sender: ABBVIE
  Company Number: JP-TAKEDA-2024TJP014466

PATIENT
  Age: 63 Year
  Sex: Male

DRUGS (5)
  1. LEUPROLIDE ACETATE [Suspect]
     Active Substance: LEUPROLIDE ACETATE
     Indication: Bulbospinal muscular atrophy congenital
     Dosage: 11.25 MILLIGRAM, Q3MONTHS
     Route: 058
     Dates: start: 20180216
  2. DIAZEPAM [Concomitant]
     Active Substance: DIAZEPAM
     Indication: Bulbospinal muscular atrophy congenital
     Dosage: 2 MILLIGRAM
     Route: 065
     Dates: start: 20180727
  3. SHAKUYAKUKANZOTO [Concomitant]
     Active Substance: HERBALS
     Indication: Bulbospinal muscular atrophy congenital
     Dosage: 3 DOSAGE FORM
     Route: 065
     Dates: start: 20180727
  4. NEUROTROPIN [Concomitant]
     Active Substance: NEUROTROPIN
     Indication: Bulbospinal muscular atrophy congenital
     Dosage: 4 DOSAGE FORM
     Route: 065
     Dates: start: 20180531
  5. HERBALS [Concomitant]
     Active Substance: HERBALS
     Indication: Bulbospinal muscular atrophy congenital
     Dosage: 3 DOSAGE FORM
     Route: 065
     Dates: start: 20180727

REACTIONS (1)
  - Diabetes mellitus [Unknown]

NARRATIVE: CASE EVENT DATE: 20200213
